FAERS Safety Report 19717213 (Version 2)
Quarter: 2021Q3

REPORT INFORMATION
  Report Type: Report from Study
  Country: None (occurrence: BR)
  Receive Date: 20210818
  Receipt Date: 20210820
  Transmission Date: 20211014
  Serious: Yes (Disabling)
  Sender: FDA-Public Use
  Company Number: BR-ABBVIE-21K-020-4039944-00

PATIENT
  Age: 68 Year
  Sex: Female
  Weight: 98 kg

DRUGS (7)
  1. COVID?19 VACCINE [Concomitant]
     Indication: COVID-19 IMMUNISATION
     Dosage: UNSPECIFIC DOSE?FIRST DOSE
     Route: 030
     Dates: start: 20210425, end: 20210425
  2. SERTRALINE [Concomitant]
     Active Substance: SERTRALINE HYDROCHLORIDE
     Indication: DEPRESSION
     Dosage: ONE TIME IN THE MORNING
  3. COVID?19 VACCINE [Concomitant]
     Dosage: UNSPECIFIC DOSE?SECOND DOSE
     Route: 030
     Dates: start: 20210625, end: 20210625
  4. NITRAZEPAM [Concomitant]
     Active Substance: NITRAZEPAM
     Indication: SLEEP DISORDER THERAPY
     Dosage: A TABLET IN THE NIGHT
  5. INFLUENZA VACCINE [Concomitant]
     Active Substance: INFLUENZA VIRUS VACCINE
     Indication: PRODUCT USED FOR UNKNOWN INDICATION
     Dates: start: 202107
  6. LEVOTHYROXINE. [Concomitant]
     Active Substance: LEVOTHYROXINE
     Indication: THYROID DISORDER
     Route: 048
  7. HUMIRA [Suspect]
     Active Substance: ADALIMUMAB
     Indication: RHEUMATOID ARTHRITIS
     Route: 058
     Dates: start: 20190919, end: 202105

REACTIONS (13)
  - Finger deformity [Unknown]
  - Erythema [Recovering/Resolving]
  - Neck pain [Recovering/Resolving]
  - Mass [Recovering/Resolving]
  - Investigation abnormal [Unknown]
  - Gait disturbance [Recovering/Resolving]
  - Burning sensation [Recovering/Resolving]
  - Pain [Recovering/Resolving]
  - Joint range of motion decreased [Recovering/Resolving]
  - Poor personal hygiene [Recovering/Resolving]
  - Joint range of motion decreased [Unknown]
  - Arthralgia [Recovering/Resolving]
  - Back pain [Recovering/Resolving]

NARRATIVE: CASE EVENT DATE: 2021
